FAERS Safety Report 25200441 (Version 1)
Quarter: 2025Q2

REPORT INFORMATION
  Report Type: Spontaneous
  Country: US (occurrence: US)
  Receive Date: 20250415
  Receipt Date: 20250415
  Transmission Date: 20250716
  Serious: No
  Sender: BAYER
  Company Number: US-BAYER-2025A049309

PATIENT

DRUGS (3)
  1. KERENDIA [Suspect]
     Active Substance: FINERENONE
  2. XANTHINE [Concomitant]
     Active Substance: XANTHINE
  3. ULORIC [Concomitant]
     Active Substance: FEBUXOSTAT

REACTIONS (1)
  - Hyperuricaemia [None]
